FAERS Safety Report 8540335-4 (Version None)
Quarter: 2012Q3

REPORT INFORMATION
  Report Type: 
  Country: None (occurrence: None)
  Receive Date: 20120726
  Receipt Date: 20120713
  Transmission Date: 20120928
  Serious: Yes (Other)
  Sender: FDA-Public Use
  Company Number: US-ROCHE-1056153

PATIENT
  Sex: Male
  Weight: 68.1 kg

DRUGS (1)
  1. ACCUTANE [Suspect]
     Indication: ACNE
     Route: 048
     Dates: start: 20000905, end: 20001226

REACTIONS (9)
  - CROHN'S DISEASE [None]
  - DRY SKIN [None]
  - IRRITABLE BOWEL SYNDROME [None]
  - BLOOD TRIGLYCERIDES DECREASED [None]
  - LIP DRY [None]
  - INFLAMMATORY BOWEL DISEASE [None]
  - ANAL FISTULA [None]
  - XEROSIS [None]
  - BLOOD TRIGLYCERIDES INCREASED [None]
